FAERS Safety Report 7682302-9 (Version None)
Quarter: 2011Q3

REPORT INFORMATION
  Report Type: 
  Country: None (occurrence: None)
  Receive Date: 20110810
  Receipt Date: 20110728
  Transmission Date: 20111222
  Serious: Yes (Hospitalization, Other)
  Sender: FDA-Public Use
  Company Number: 2011070110

PATIENT
  Age: 41 Year
  Sex: Female

DRUGS (1)
  1. MESALAMINE [Suspect]
     Indication: CROHN'S DISEASE

REACTIONS (5)
  - ALLERGIC MYOCARDITIS [None]
  - TOXICITY TO VARIOUS AGENTS [None]
  - LEFT ATRIAL DILATATION [None]
  - ATRIOVENTRICULAR BLOCK FIRST DEGREE [None]
  - VENTRICULAR HYPOKINESIA [None]
